FAERS Safety Report 9765026 (Version 1)
Quarter: 2013Q4

REPORT INFORMATION
  Report Type: Spontaneous
  Country: US (occurrence: US)
  Receive Date: 20131217
  Receipt Date: 20131217
  Transmission Date: 20140711
  Serious: Yes (Hospitalization, Other)
  Sender: FDA-Public Use
  Company Number: US-RB-060818-13

PATIENT
  Age: 40 Year
  Sex: Male

DRUGS (3)
  1. DELSYM NIGHT ADULT COUGH + COLD LIQUID [Suspect]
     Indication: PRODUCT USED FOR UNKNOWN INDICATION
     Dosage: TOOK A DOSE OF THE PRODUCT AT 8PM AND ANOTHER AT 12 MIDNIGHT ON AN UNSPECIFIED DATE
     Route: 048
  2. ZINC [Concomitant]
     Indication: NASOPHARYNGITIS
  3. VITAMIN C [Concomitant]
     Indication: NASOPHARYNGITIS

REACTIONS (5)
  - Depressed level of consciousness [Recovered/Resolved]
  - Disorientation [Recovered/Resolved]
  - Aggression [Recovered/Resolved]
  - Heart rate increased [Recovered/Resolved]
  - Unevaluable event [Recovered/Resolved]
